FAERS Safety Report 23283714 (Version 2)
Quarter: 2023Q4

REPORT INFORMATION
  Report Type: Report from Study
  Country: CN (occurrence: CN)
  Receive Date: 20231211
  Receipt Date: 20231218
  Transmission Date: 20240110
  Serious: Yes (Death, Hospitalization)
  Sender: FDA-Public Use
  Company Number: CN-Eisai-EC-2023-154775

PATIENT
  Age: 60 Year
  Sex: Female
  Weight: 42.5 kg

DRUGS (5)
  1. LENVATINIB [Suspect]
     Active Substance: LENVATINIB
     Indication: Hepatocellular carcinoma
     Route: 048
     Dates: start: 20211210, end: 20220814
  2. TORIPALIMAB [Suspect]
     Active Substance: TORIPALIMAB
     Indication: Hepatocellular carcinoma
     Dosage: 240 MG/PLACEBO
     Route: 042
     Dates: start: 20211210, end: 20220301
  3. ENTECAVIR [Concomitant]
     Active Substance: ENTECAVIR
     Indication: Hepatitis B
     Route: 048
     Dates: start: 201805
  4. URSODIOL [Concomitant]
     Active Substance: URSODIOL
     Indication: Blood bilirubin increased
     Route: 048
     Dates: start: 20210928
  5. LEVOTHYROXINE SODIUM [Concomitant]
     Active Substance: LEVOTHYROXINE SODIUM
     Indication: Hypothyroidism
     Route: 048
     Dates: start: 20220117

REACTIONS (1)
  - Tumour haemorrhage [Fatal]

NARRATIVE: CASE EVENT DATE: 20220815
